FAERS Safety Report 5642852-3 (Version None)
Quarter: 2008Q1

REPORT INFORMATION
  Report Type: 
  Country: None (occurrence: None)
  Receive Date: 20080228
  Receipt Date: 20080220
  Transmission Date: 20080703
  Serious: Yes (Other)
  Sender: FDA-Public Use
  Company Number: PHBS2008BR01959

PATIENT
  Age: 36 Year
  Sex: Male
  Weight: 102 kg

DRUGS (11)
  1. PARLODEL [Suspect]
     Indication: BLOOD PROLACTIN DECREASED
     Dosage: 5 MG, QD
     Route: 048
     Dates: start: 20080126
  2. SEROQUEL [Concomitant]
     Indication: BIPOLAR DISORDER
     Dosage: 400 MG/DAY
     Route: 048
     Dates: start: 20070101
  3. GEODON [Concomitant]
     Indication: BIPOLAR DISORDER
     Dosage: 80 MG/DAY
     Route: 048
  4. GEODON [Concomitant]
     Dosage: 40 MG/DAY
     Route: 048
  5. NEOZINE [Concomitant]
     Dosage: 100 MG/DAY
     Route: 048
  6. DEPAKOTE [Concomitant]
     Indication: MOOD ALTERED
     Dosage: 1500 MG/DAY
     Route: 048
     Dates: start: 20040101
  7. RIVOTRIL [Concomitant]
     Indication: PANIC DISORDER
     Dosage: 4 MG/DAY
     Route: 048
     Dates: start: 19940101
  8. NEUROL [Concomitant]
     Indication: DEPRESSION
     Dosage: 25 MG/DAY
     Route: 048
     Dates: start: 20070101
  9. OMEPRAZOLE [Concomitant]
     Indication: PROPHYLAXIS
     Dosage: 40 MG/DAY
     Route: 048
     Dates: start: 20070101
  10. BROMOPRIDE [Concomitant]
     Indication: PROPHYLAXIS
     Dosage: 40 MG/DAY
     Route: 048
     Dates: start: 20080117
  11. RANITIDINE HCL [Concomitant]
     Indication: PROPHYLAXIS
     Dosage: 1 TABLET/DAY
     Route: 048
     Dates: start: 20080117

REACTIONS (4)
  - AMNESIA [None]
  - CONFUSIONAL STATE [None]
  - PANIC ATTACK [None]
  - VISION BLURRED [None]
